FAERS Safety Report 4487752-X (Version None)
Quarter: 2004Q4

REPORT INFORMATION
  Report Type: 
  Country: None (occurrence: None)
  Receive Date: 20041025
  Receipt Date: 20041019
  Transmission Date: 20050328
  Serious: Yes (Other)
  Sender: FDA-Public Use
  Company Number: 2004236712US

PATIENT
  Age: 10 Year
  Sex: Male
  Weight: 52.6 kg

DRUGS (2)
  1. FLAGYL [Suspect]
     Indication: GIARDIASIS
     Dosage: 250 MG, TID, ORAL
     Route: 048
     Dates: start: 20040927, end: 20041001
  2. CULTURELLE [Concomitant]

REACTIONS (1)
  - ANAPHYLACTIC REACTION [None]
